FAERS Safety Report 15918449 (Version 1)
Quarter: 2019Q1

REPORT INFORMATION
  Report Type: Spontaneous
  Country: US (occurrence: US)
  Receive Date: 20190205
  Receipt Date: 20190205
  Transmission Date: 20190417
  Serious: No
  Sender: FDA-Public Use
  Company Number: US-BAYER-2019-022540

PATIENT

DRUGS (6)
  1. METHOTREXATE. [Concomitant]
     Active Substance: METHOTREXATE
  2. XELJANZ [Concomitant]
     Active Substance: TOFACITINIB CITRATE
  3. ENBREL [Concomitant]
     Active Substance: ETANERCEPT
  4. CLARITIN [Suspect]
     Active Substance: LORATADINE
  5. HYDROXYCHLOROQUINE [Concomitant]
     Active Substance: HYDROXYCHLOROQUINE
  6. ARAVA [Concomitant]
     Active Substance: LEFLUNOMIDE

REACTIONS (1)
  - Drug hypersensitivity [Unknown]
